FAERS Safety Report 8397778-1 (Version None)
Quarter: 2012Q2

REPORT INFORMATION
  Report Type: 
  Country: None (occurrence: None)
  Receive Date: 20120524
  Receipt Date: 20120515
  Transmission Date: 20120825
  Serious: No
  Sender: FDA-Public Use
  Company Number: B0802453A

PATIENT
  Sex: Female

DRUGS (3)
  1. SORAFENIB (FORMULATION UNKNOWN) (SORAFENIB) [Suspect]
     Indication: MALIGNANT MELANOMA
     Dosage: 400 MG
  2. MELPHALAN HYDROCHLORIDE [Suspect]
     Indication: MALIGNANT MELANOMA
     Dosage: INTRAVENOUS INFUSION
     Route: 042
  3. PAPAVERINE [Concomitant]

REACTIONS (2)
  - TOXICITY TO VARIOUS AGENTS [None]
  - ULCER [None]
